FAERS Safety Report 25944109 (Version 1)
Quarter: 2025Q4

REPORT INFORMATION
  Report Type: Spontaneous
  Country: EU (occurrence: EU)
  Receive Date: 20251021
  Receipt Date: 20251021
  Transmission Date: 20260117
  Serious: Yes (Death, Other)
  Sender: SANOFI AVENTIS
  Company Number: EU-EMA-20110318-syelurip-151941232

PATIENT
  Age: 12 Year
  Sex: Male

DRUGS (6)
  1. FLUDARABINE PHOSPHATE [Suspect]
     Active Substance: FLUDARABINE PHOSPHATE
     Indication: Acute lymphocytic leukaemia
     Dosage: 180 MG/M2
  2. THYMOGLOBULIN [Suspect]
     Active Substance: LAPINE T-LYMPHOCYTE IMMUNE GLOBULIN
     Indication: Acute lymphocytic leukaemia
     Dosage: 60 MG/KG
  3. MELPHALAN [Suspect]
     Active Substance: MELPHALAN
     Indication: Acute lymphocytic leukaemia
     Dosage: 140 MG/M2
  4. TREOSULFAN [Suspect]
     Active Substance: TREOSULFAN
     Indication: Acute lymphocytic leukaemia
     Dosage: 12 MG/M2
  5. CYCLOSPORINE [Concomitant]
     Active Substance: CYCLOSPORINE
     Indication: Prophylaxis against graft versus host disease
     Dosage: UNK
  6. METHOTREXATE [Concomitant]
     Active Substance: METHOTREXATE
     Indication: Prophylaxis against graft versus host disease
     Dosage: 3X2.5  MG/M2

REACTIONS (7)
  - Acute respiratory distress syndrome [Fatal]
  - Capillary leak syndrome [Fatal]
  - Dermatitis exfoliative [Fatal]
  - Renal failure [Fatal]
  - Multiple organ dysfunction syndrome [Fatal]
  - Mucosal inflammation [Unknown]
  - Off label use [Unknown]
